FAERS Safety Report 16376200 (Version 1)
Quarter: 2019Q2

REPORT INFORMATION
  Report Type: Spontaneous
  Country: DE (occurrence: DE)
  Receive Date: 20190531
  Receipt Date: 20190531
  Transmission Date: 20190711
  Serious: Yes (Other)
  Sender: FDA-Public Use
  Company Number: DE-ASTRAZENECA-2019SE79603

PATIENT
  Sex: Female
  Weight: 120 kg

DRUGS (1)
  1. FASENRA [Suspect]
     Active Substance: BENRALIZUMAB
     Indication: ASTHMA
     Route: 058

REACTIONS (5)
  - Pruritus [Unknown]
  - Pain in extremity [Unknown]
  - Myalgia [Unknown]
  - Haemorrhage [Unknown]
  - Asthma [Unknown]
